FAERS Safety Report 6948283-8 (Version None)
Quarter: 2010Q3

REPORT INFORMATION
  Report Type: 
  Country: None (occurrence: None)
  Receive Date: 20100828
  Receipt Date: 20091023
  Transmission Date: 20110219
  Serious: No
  Sender: FDA-Public Use
  Company Number: US-ABBOTT-09P-163-0605436-00

PATIENT
  Age: 57 Year
  Sex: Male
  Weight: 117.13 kg

DRUGS (4)
  1. NIASPAN [Suspect]
     Indication: LOW DENSITY LIPOPROTEIN INCREASED
     Dosage: 3 SAMPLE PACKS USING
     Route: 048
     Dates: start: 20091022
  2. LIPITOR [Concomitant]
     Indication: LOW DENSITY LIPOPROTEIN INCREASED
  3. UNKNOWN DIABETIC MEDICATION [Concomitant]
     Indication: TYPE 2 DIABETES MELLITUS
  4. UNKNOWN HIGH BLOOD PRESSURE MEDICATION [Concomitant]
     Indication: HYPERTENSION

REACTIONS (4)
  - ABDOMINAL DISCOMFORT [None]
  - MUSCLE SPASMS [None]
  - NIGHT SWEATS [None]
  - POLLAKIURIA [None]
